FAERS Safety Report 20849381 (Version 4)
Quarter: 2022Q3

REPORT INFORMATION
  Report Type: Spontaneous
  Country: JP (occurrence: None)
  Receive Date: 20220519
  Receipt Date: 20220816
  Transmission Date: 20221027
  Serious: Yes (Hospitalization, Other)
  Sender: FDA-Public Use
  Company Number: 2022A188324

PATIENT
  Age: 26331 Day
  Sex: Male
  Weight: 66 kg

DRUGS (9)
  1. IMFINZI [Suspect]
     Active Substance: DURVALUMAB
     Indication: Non-small cell lung cancer
     Route: 041
     Dates: start: 20210428, end: 20210428
  2. IMFINZI [Suspect]
     Active Substance: DURVALUMAB
     Indication: Non-small cell lung cancer
     Route: 041
     Dates: start: 20210908, end: 20220330
  3. NEXIUM [Concomitant]
     Active Substance: ESOMEPRAZOLE MAGNESIUM
     Dosage: AFTER BREAKFAST
     Route: 048
  4. DEXTROMETHORPHAN HYDROBROMIDE [Concomitant]
     Active Substance: DEXTROMETHORPHAN HYDROBROMIDE
     Dosage: AFTER EACH MEAL
     Route: 048
  5. CODEINE PHOSPHATE [Concomitant]
     Active Substance: CODEINE PHOSPHATE
     Dosage: AFTER EACH MEAL
     Route: 048
  6. CARBOCYSTEINE [Concomitant]
     Active Substance: CARBOCYSTEINE
     Dosage: AFTER EACH MEAL
     Route: 048
  7. AMLODIPINE [Concomitant]
     Active Substance: AMLODIPINE BESYLATE
     Dosage: AFTER EACH MEAL
     Route: 048
  8. VALSARTAN [Concomitant]
     Active Substance: VALSARTAN
     Dosage: AFTER BREAKFAST
     Route: 048
  9. LOXOPROFEN [Concomitant]
     Active Substance: LOXOPROFEN
     Dosage: APPLICATION AS REQUIRED, WHEN THERE IS PAIN
     Route: 062

REACTIONS (2)
  - Pulmonary toxicity [Recovering/Resolving]
  - Pneumonia bacterial [Recovering/Resolving]

NARRATIVE: CASE EVENT DATE: 20210519
